FAERS Safety Report 23740193 (Version 4)
Quarter: 2024Q3

REPORT INFORMATION
  Report Type: Spontaneous
  Country: US (occurrence: US)
  Receive Date: 20240414
  Receipt Date: 20240828
  Transmission Date: 20241016
  Serious: No
  Sender: BAUSCH AND LOMB
  Company Number: US-BAUSCHBL-2024BNL004303

PATIENT
  Age: 69 Year
  Sex: Female

DRUGS (3)
  1. PREDNISOLONE SODIUM PHOSPHATE\SULFACETAMIDE SODIUM [Suspect]
     Active Substance: PREDNISOLONE SODIUM PHOSPHATE\SULFACETAMIDE SODIUM
     Indication: Dry eye
     Dosage: 1 DROP IN ONE OR BOTH EYES EVERY TWO TO THREE WEEKS, AS NEEDED
     Route: 047
     Dates: start: 2022, end: 2023
  2. BIOTRUE HYDRATION BOOST [Suspect]
     Active Substance: GLYCERIN
     Indication: Product used for unknown indication
     Route: 065
  3. GLYCERIN\PROPYLENE GLYCOL [Suspect]
     Active Substance: GLYCERIN\PROPYLENE GLYCOL
     Indication: Product used for unknown indication
     Route: 065

REACTIONS (8)
  - Eye disorder [Unknown]
  - Hypersensitivity [Unknown]
  - Product use issue [Unknown]
  - Product availability issue [Unknown]
  - Expired product administered [Unknown]
  - Product contamination [Unknown]
  - Product container issue [Unknown]
  - Product delivery mechanism issue [Unknown]

NARRATIVE: CASE EVENT DATE: 20230101
